FAERS Safety Report 6166905-9 (Version None)
Quarter: 2009Q2

REPORT INFORMATION
  Report Type: 
  Country: None (occurrence: None)
  Receive Date: 20090423
  Receipt Date: 20090423
  Transmission Date: 20091009
  Serious: Yes (Other)
  Sender: FDA-Public Use
  Company Number: None

PATIENT
  Age: 38 Year
  Sex: Female

DRUGS (7)
  1. GEODON [Suspect]
     Dosage: 20MG, 40MG  20MG AC, 40MG  HS PO
     Route: 048
  2. TEGRETOL [Concomitant]
  3. CYMBALTA [Concomitant]
  4. VISTARIL [Concomitant]
  5. METHOCARBAMOL [Concomitant]
  6. SINGULAIR [Concomitant]
  7. ALBUTEROL [Concomitant]

REACTIONS (5)
  - AGITATION [None]
  - DYSPNOEA [None]
  - FLUSHING [None]
  - TACHYCARDIA [None]
  - URTICARIA [None]
